FAERS Safety Report 5592246-4 (Version None)
Quarter: 2007Q4

REPORT INFORMATION
  Report Type: 
  Country: None (occurrence: None)
  Receive Date: 20071217
  Receipt Date: 20070817
  Transmission Date: 20080405
  Serious: No
  Sender: FDA-Public Use
  Company Number: BDI-010041

PATIENT
  Age: 23 Year
  Sex: Female

DRUGS (2)
  1. MULTIHANCE [Suspect]
     Indication: ANGIOGRAM
     Dosage: 20 ML ONCE IV
     Route: 042
     Dates: start: 20070817, end: 20070817
  2. MULTIHANCE [Suspect]
     Indication: HYPERTENSION
     Dosage: 20 ML ONCE IV
     Route: 042
     Dates: start: 20070817, end: 20070817

REACTIONS (1)
  - HYPERSENSITIVITY [None]
